FAERS Safety Report 7433158-0 (Version None)
Quarter: 2011Q2

REPORT INFORMATION
  Report Type: 
  Country: None (occurrence: None)
  Receive Date: 20110415
  Receipt Date: 20110406
  Transmission Date: 20111010
  Serious: Yes (Hospitalization, Other)
  Sender: FDA-Public Use
  Company Number: 2009SP023295

PATIENT
  Age: 51 Year
  Sex: Female
  Weight: 97.0698 kg

DRUGS (7)
  1. FROVA [Concomitant]
  2. ACETAMINOPHEN [Concomitant]
  3. HEPARIN [Suspect]
     Indication: ANTICOAGULANT THERAPY
  4. NUVARING [Suspect]
     Indication: CONTRACEPTION
     Dosage: 1 DF;
     Dates: start: 20060101, end: 20070701
  5. NUVARING [Suspect]
     Indication: HEADACHE
     Dosage: 1 DF;
     Dates: start: 20060101, end: 20070701
  6. NUVARING [Suspect]
     Indication: MENOPAUSAL SYMPTOMS
     Dosage: 1 DF;
     Dates: start: 20060101, end: 20070701
  7. ACTIVASE [Suspect]
     Indication: ANTICOAGULANT THERAPY

REACTIONS (36)
  - GASTROOESOPHAGEAL REFLUX DISEASE [None]
  - PARAESTHESIA [None]
  - CALCULUS URETERIC [None]
  - ABDOMINAL WALL HAEMATOMA [None]
  - ATELECTASIS [None]
  - DYSPNOEA [None]
  - CHEST DISCOMFORT [None]
  - SINUS BRADYCARDIA [None]
  - GALLBLADDER DISORDER [None]
  - MENSTRUAL DISORDER [None]
  - MENTAL DISORDER [None]
  - PLEURAL EFFUSION [None]
  - PNEUMONIA [None]
  - ARTHRALGIA [None]
  - BLOOD URINE [None]
  - EMOTIONAL DISORDER [None]
  - HAEMATOMA [None]
  - DILATATION VENTRICULAR [None]
  - MYOCARDIAL ISCHAEMIA [None]
  - DYSURIA [None]
  - HYDRONEPHROSIS [None]
  - NEPHROLITHIASIS [None]
  - VOMITING [None]
  - HYPOKALAEMIA [None]
  - DEEP VEIN THROMBOSIS [None]
  - OSTEOPENIA [None]
  - OVARIAN CYST [None]
  - NAUSEA [None]
  - HYPOAESTHESIA [None]
  - ABDOMINAL PAIN [None]
  - GASTRITIS EROSIVE [None]
  - PULMONARY EMBOLISM [None]
  - FEAR [None]
  - COAGULATION FACTOR VIII LEVEL INCREASED [None]
  - FLANK PAIN [None]
  - DIVERTICULITIS [None]
